FAERS Safety Report 9660633 (Version 2)
Quarter: 2013Q4

REPORT INFORMATION
  Report Type: Spontaneous
  Country: AU (occurrence: AU)
  Receive Date: 20131031
  Receipt Date: 20131105
  Transmission Date: 20140711
  Serious: Yes (Life-Threatening, Hospitalization)
  Sender: FDA-Public Use
  Company Number: AU-ROCHE-1297574

PATIENT
  Age: 56 Year
  Sex: Male

DRUGS (5)
  1. RIBAVIRIN [Suspect]
     Indication: HEPATITIS C
     Route: 048
     Dates: start: 20120810, end: 20130905
  2. INTERFERON ALFA-2A [Suspect]
     Indication: HEPATITIS C
     Route: 058
     Dates: start: 20120810, end: 20130905
  3. ZOLOFT [Concomitant]
     Indication: DEPRESSION
     Route: 048
  4. SOMAC (AUSTRALIA) [Concomitant]
     Route: 048
  5. SUBOXONE [Concomitant]
     Indication: DRUG DEPENDENCE
     Route: 065

REACTIONS (2)
  - Glomerulonephritis [Not Recovered/Not Resolved]
  - Vasculitis [Not Recovered/Not Resolved]
